FAERS Safety Report 21387007 (Version 2)
Quarter: 2022Q4

REPORT INFORMATION
  Report Type: Spontaneous
  Country: US (occurrence: US)
  Receive Date: 20220928
  Receipt Date: 20221022
  Transmission Date: 20230112
  Serious: No
  Sender: FDA-Public Use
  Company Number: US-ALXN-A202211597

PATIENT
  Age: 50 Year
  Sex: Female
  Weight: 59 kg

DRUGS (5)
  1. SOLIRIS [Suspect]
     Active Substance: ECULIZUMAB
     Indication: Neuromyelitis optica spectrum disorder
     Dosage: UNK
     Route: 065
     Dates: start: 20220624
  2. SOLIRIS [Suspect]
     Active Substance: ECULIZUMAB
     Dosage: UNK
     Route: 065
     Dates: start: 20220701
  3. BENADRYL                           /00000402/ [Concomitant]
     Indication: Product used for unknown indication
     Dosage: 25 MG, UNK
     Route: 042
     Dates: start: 20220708
  4. CYTOMEL [Concomitant]
     Active Substance: LIOTHYRONINE SODIUM
     Indication: Product used for unknown indication
     Dosage: 5 ?G, QD
     Route: 065
  5. TYLENOL                            /00020001/ [Concomitant]
     Indication: Product used for unknown indication
     Dosage: 650 MG, UNK
     Route: 048
     Dates: start: 20220708

REACTIONS (8)
  - Neuralgia [Unknown]
  - Movement disorder [Unknown]
  - Muscle strain [Unknown]
  - Bone pain [Not Recovered/Not Resolved]
  - Arthralgia [Not Recovered/Not Resolved]
  - Insomnia [Not Recovered/Not Resolved]
  - Pain in extremity [Unknown]
  - Neck pain [Unknown]

NARRATIVE: CASE EVENT DATE: 20220624
